FAERS Safety Report 4791744-0 (Version None)
Quarter: 2005Q4

REPORT INFORMATION
  Report Type: 
  Country: None (occurrence: None)
  Receive Date: 20051005
  Receipt Date: 20050916
  Transmission Date: 20060501
  Serious: Yes (Disabling)
  Sender: FDA-Public Use
  Company Number: 384576

PATIENT
  Age: 22 Year
  Sex: Male
  Weight: 76.2 kg

DRUGS (1)
  1. ACCUTANE [Suspect]
     Indication: ACNE
     Dosage: ORAL
     Route: 048
     Dates: start: 19980615

REACTIONS (40)
  - ABDOMINAL DISTENSION [None]
  - AGITATION [None]
  - ANAL FISSURE [None]
  - ANGER [None]
  - ANORECTAL DISORDER [None]
  - ANXIETY [None]
  - ASTHENIA [None]
  - BIPOLAR DISORDER [None]
  - CATARACT [None]
  - CHANGE OF BOWEL HABIT [None]
  - CHEST PAIN [None]
  - CHRONIC FATIGUE SYNDROME [None]
  - COLITIS [None]
  - CROHN'S DISEASE [None]
  - DEFAECATION URGENCY [None]
  - DEPRESSION [None]
  - DIARRHOEA [None]
  - DRUG ABUSER [None]
  - DRUG INEFFECTIVE [None]
  - DYSPEPSIA [None]
  - GASTROINTESTINAL DISORDER [None]
  - HAEMATOCHEZIA [None]
  - HIATUS HERNIA [None]
  - INSOMNIA [None]
  - INTESTINAL HAEMORRHAGE [None]
  - MOOD SWINGS [None]
  - MULTI-ORGAN DISORDER [None]
  - OBSESSIVE THOUGHTS [None]
  - PAIN IN EXTREMITY [None]
  - PARANASAL SINUS DISCOMFORT [None]
  - POLYARTHRITIS [None]
  - POLYP [None]
  - PROCTALGIA [None]
  - REFUSAL OF TREATMENT BY PATIENT [None]
  - SELF INJURIOUS BEHAVIOUR [None]
  - STRESS [None]
  - SUICIDAL IDEATION [None]
  - THERAPY NON-RESPONDER [None]
  - VOMITING [None]
  - WEIGHT DECREASED [None]
